FAERS Safety Report 8336040-X (Version None)
Quarter: 2012Q2

REPORT INFORMATION
  Report Type: 
  Country: None (occurrence: None)
  Receive Date: 20120504
  Receipt Date: 20120424
  Transmission Date: 20120825
  Serious: Yes (Other)
  Sender: FDA-Public Use
  Company Number: JP-JNJFOC-20120413989

PATIENT
  Sex: Male
  Weight: 55 kg

DRUGS (17)
  1. FENTANYL-100 [Suspect]
     Indication: PAIN
     Route: 062
     Dates: start: 20111215, end: 20120211
  2. AMITRIPTYLINE HCL [Concomitant]
     Indication: PAIN
     Route: 048
     Dates: start: 20101121
  3. LYRICA [Concomitant]
     Indication: PAIN
     Dosage: 16 LU
     Route: 048
     Dates: start: 20110620
  4. MOTILIUM [Concomitant]
     Indication: PROPHYLAXIS
     Dosage: 16 LU
     Route: 048
     Dates: start: 20111014
  5. FENTANYL-100 [Suspect]
     Route: 062
     Dates: start: 20111123, end: 20111124
  6. GABAPENTIN [Concomitant]
     Route: 048
     Dates: start: 20100730, end: 20101031
  7. AMITRIPTYLINE HCL [Concomitant]
     Route: 048
     Dates: start: 20100813, end: 20100826
  8. LYRICA [Concomitant]
     Dosage: 16 LU
     Route: 048
     Dates: start: 20101101, end: 20110619
  9. FENTANYL-100 [Suspect]
     Route: 062
     Dates: start: 20111111, end: 20111123
  10. FENTANYL-100 [Suspect]
     Route: 062
     Dates: start: 20111125, end: 20111129
  11. FENTANYL-100 [Suspect]
     Route: 062
     Dates: start: 20111130, end: 20111205
  12. NEUROTROPIN [Concomitant]
     Indication: PAIN
     Dosage: 16 LU
     Route: 048
     Dates: start: 20100730
  13. VOLTAREN [Concomitant]
     Dosage: 16 LU
     Route: 048
     Dates: start: 20101022
  14. FENTANYL-100 [Suspect]
     Route: 062
     Dates: start: 20111205, end: 20111215
  15. AMITRIPTYLINE HCL [Concomitant]
     Route: 048
     Dates: start: 20100827, end: 20111120
  16. MEXITIL [Concomitant]
     Indication: PAIN
     Dosage: 16 LU
     Route: 048
     Dates: start: 20110620
  17. UNKNOWN MEDICATION [Concomitant]
     Indication: PAIN
     Route: 065
     Dates: start: 20100730

REACTIONS (4)
  - NAUSEA [None]
  - DRUG INTOLERANCE [None]
  - WRONG TECHNIQUE IN DRUG USAGE PROCESS [None]
  - MENTAL DISORDER [None]
